FAERS Safety Report 19606200 (Version 1)
Quarter: 2021Q3

REPORT INFORMATION
  Report Type: Spontaneous
  Country: US (occurrence: US)
  Receive Date: 20210725
  Receipt Date: 20210725
  Transmission Date: 20211014
  Serious: Yes (Death, Other)
  Sender: FDA-Public Use
  Company Number: US-SA-2021SA244116

PATIENT
  Age: 72 Year
  Sex: Female

DRUGS (1)
  1. ZANTAC [Suspect]
     Active Substance: RANITIDINE HYDROCHLORIDE
     Indication: GASTROOESOPHAGEAL REFLUX DISEASE
     Dosage: UNK UNK, QD
     Dates: start: 199601, end: 200201

REACTIONS (3)
  - Oesophageal carcinoma [Fatal]
  - Colorectal cancer stage III [Fatal]
  - Haematopoietic neoplasm [Fatal]

NARRATIVE: CASE EVENT DATE: 19961226
